FAERS Safety Report 20625468 (Version 1)
Quarter: 2022Q1

REPORT INFORMATION
  Report Type: Spontaneous
  Country: BE (occurrence: BE)
  Receive Date: 20220323
  Receipt Date: 20220323
  Transmission Date: 20220424
  Serious: Yes (Hospitalization)
  Sender: FDA-Public Use
  Company Number: None

PATIENT
  Age: 53 Year
  Sex: Female

DRUGS (9)
  1. METHOTREXATE [Suspect]
     Active Substance: METHOTREXATE
     Dosage: STOPPED FOR ALMOST A YEAR, NOW RECENTLY STARTED AGAIN,UNIT DOSE :22.5MG
     Route: 065
  2. PREDNISOLONE [Concomitant]
     Active Substance: PREDNISOLONE
     Dosage: 7MG
  3. PREDNISOLONE [Concomitant]
     Active Substance: PREDNISOLONE
     Dosage: 8MG
  4. TRAMADOL HYDROCHLORIDE [Concomitant]
     Active Substance: TRAMADOL HYDROCHLORIDE
     Dosage: TRADONAL RETARD 50 MG,UNIT DOSE :2DF
  5. LIPITOR [Concomitant]
     Active Substance: ATORVASTATIN CALCIUM
     Dosage: LIPITOR 20 MG,UNIT DOSE :1DF
  6. OMEPRAZOLE [Concomitant]
     Active Substance: OMEPRAZOLE
     Dosage: OMEPRAZOL 40 MG,UNIT DOSE:2DF
  7. KEVZARA [Concomitant]
     Active Substance: SARILUMAB
     Dosage: KEVZARA 200 MG,UNIT DOSE:1DF
     Route: 058
  8. FOLIC ACID [Concomitant]
     Active Substance: FOLIC ACID
     Dosage: DAY AFTER MTX (TEMPORARILY ALSO STOPPED),UNIT DOSE:10MG
  9. LYNESTRENOL [Concomitant]
     Active Substance: LYNESTRENOL
     Dosage: ORGAMETRIL 5 MG,UNIT DOSE :1DF

REACTIONS (7)
  - Pulmonary embolism [Not Recovered/Not Resolved]
  - Painful respiration [Not Recovered/Not Resolved]
  - Pain in extremity [Not Recovered/Not Resolved]
  - Peripheral embolism [Not Recovered/Not Resolved]
  - Fatigue [Not Recovered/Not Resolved]
  - Back pain [Not Recovered/Not Resolved]
  - Musculoskeletal pain [Not Recovered/Not Resolved]

NARRATIVE: CASE EVENT DATE: 20210605
